FAERS Safety Report 20069034 (Version 1)
Quarter: 2021Q4

REPORT INFORMATION
  Report Type: Spontaneous
  Country: US (occurrence: US)
  Receive Date: 20211115
  Receipt Date: 20211115
  Transmission Date: 20220303
  Serious: No
  Sender: FDA-Public Use
  Company Number: US-GW PHARMA-202111USGW05464

PATIENT

DRUGS (2)
  1. EPIDIOLEX [Suspect]
     Active Substance: CANNABIDIOL
     Indication: Seizure
     Dosage: UNK
     Route: 048
  2. ONFI [Concomitant]
     Active Substance: CLOBAZAM
     Indication: Seizure
     Dosage: UNK
     Route: 065

REACTIONS (2)
  - Seizure [Not Recovered/Not Resolved]
  - Therapeutic response unexpected [Unknown]
